FAERS Safety Report 18679682 (Version 8)
Quarter: 2022Q3

REPORT INFORMATION
  Report Type: Report from Study
  Country: US (occurrence: US)
  Receive Date: 20201229
  Receipt Date: 20220718
  Transmission Date: 20221027
  Serious: No
  Sender: FDA-Public Use
  Company Number: NVSC2020US344330

PATIENT
  Sex: Male

DRUGS (1)
  1. COSENTYX [Suspect]
     Active Substance: SECUKINUMAB
     Indication: Product used for unknown indication
     Dosage: UNK UNK, UNKNOWN
     Route: 065

REACTIONS (7)
  - Arthritis [Not Recovered/Not Resolved]
  - Onychomadesis [Unknown]
  - Psoriasis [Not Recovered/Not Resolved]
  - Musculoskeletal stiffness [Unknown]
  - Erythema [Unknown]
  - Grip strength decreased [Unknown]
  - Product dose omission issue [Unknown]
